FAERS Safety Report 6742010-5 (Version None)
Quarter: 2010Q2

REPORT INFORMATION
  Report Type: 
  Country: None (occurrence: None)
  Receive Date: 20100526
  Receipt Date: 20100518
  Transmission Date: 20101027
  Serious: Yes (Hospitalization, Other)
  Sender: FDA-Public Use
  Company Number: JP-JNJFOC-20100500010

PATIENT
  Sex: Male

DRUGS (10)
  1. CRAVIT [Suspect]
     Indication: INFECTION PARASITIC
     Route: 048
  2. FASTIC [Suspect]
     Indication: DIABETES MELLITUS
     Route: 048
  3. BASEN [Suspect]
     Indication: DIABETES MELLITUS
     Route: 048
  4. ZYLORIC [Concomitant]
     Indication: HYPERURICAEMIA
     Route: 048
  5. FALECALCITRIOL [Concomitant]
     Indication: HYPERPARATHYROIDISM
     Route: 048
  6. MUCOSTA [Concomitant]
     Route: 048
  7. NORVASC [Concomitant]
     Indication: HYPERTENSION
     Route: 048
  8. DIOVAN [Concomitant]
     Indication: HYPERTENSION
     Route: 048
  9. EPADEL [Concomitant]
     Route: 048
  10. RENAGEL [Concomitant]
     Indication: HYPERPHOSPHATAEMIA
     Route: 048

REACTIONS (2)
  - BLOOD SODIUM DECREASED [None]
  - HYPOGLYCAEMIA [None]
